FAERS Safety Report 4980417-7 (Version None)
Quarter: 2006Q2

REPORT INFORMATION
  Report Type: 
  Country: None (occurrence: None)
  Receive Date: 20060424
  Receipt Date: 20060419
  Transmission Date: 20061013
  Serious: Yes (Other)
  Sender: FDA-Public Use
  Company Number: CA-GLAXOSMITHKLINE-A0602800A

PATIENT
  Age: 6 Year
  Sex: Male

DRUGS (1)
  1. DEXEDRINE [Suspect]
     Indication: DRUG USE FOR UNKNOWN INDICATION
     Dosage: 10MG SINGLE DOSE
     Route: 048
     Dates: start: 20051029

REACTIONS (6)
  - ABDOMINAL DISCOMFORT [None]
  - MEDICATION ERROR [None]
  - MYDRIASIS [None]
  - OVERDOSE [None]
  - PARAESTHESIA [None]
  - SPEECH DISORDER [None]
